FAERS Safety Report 7975513-6 (Version None)
Quarter: 2011Q4

REPORT INFORMATION
  Report Type: 
  Country: None (occurrence: None)
  Receive Date: 20111213
  Receipt Date: 20110930
  Transmission Date: 20120403
  Serious: No
  Sender: FDA-Public Use
  Company Number: US-AMGEN-USASP2011050700

PATIENT
  Age: 72 Year
  Sex: Female

DRUGS (2)
  1. METHOTREXATE [Concomitant]
     Dosage: UNK
     Dates: start: 19980101
  2. ENBREL [Suspect]
     Indication: RHEUMATOID ARTHRITIS
     Dosage: 50 MG, QWK
     Dates: start: 20080910

REACTIONS (5)
  - SPINAL DISORDER [None]
  - OSTEOPOROSIS [None]
  - MUSCULOSKELETAL STIFFNESS [None]
  - HYPERKERATOSIS [None]
  - HERPES ZOSTER [None]
